FAERS Safety Report 13375793 (Version 3)
Quarter: 2017Q2

REPORT INFORMATION
  Report Type: Spontaneous
  Country: US (occurrence: US)
  Receive Date: 20170328
  Receipt Date: 20170516
  Transmission Date: 20170830
  Serious: No
  Sender: FDA-Public Use
  Company Number: US-009507513-1703USA007903

PATIENT
  Age: 16 Year
  Sex: Female
  Weight: 52.61 kg

DRUGS (1)
  1. NEXPLANON [Suspect]
     Active Substance: ETONOGESTREL
     Indication: PRODUCT USED FOR UNKNOWN INDICATION
     Dosage: 68 MG EVERY 3 YEARS
     Route: 059
     Dates: start: 20160125, end: 20170315

REACTIONS (5)
  - Menstruation irregular [Not Recovered/Not Resolved]
  - Product quality issue [Unknown]
  - No adverse event [Unknown]
  - Device deployment issue [Recovered/Resolved]
  - Device breakage [Recovered/Resolved]

NARRATIVE: CASE EVENT DATE: 20160125
